FAERS Safety Report 9237005 (Version 1)
Quarter: 2013Q2

REPORT INFORMATION
  Report Type: Spontaneous
  Country: RO (occurrence: RO)
  Receive Date: 20130417
  Receipt Date: 20130417
  Transmission Date: 20140414
  Serious: Yes (Hospitalization)
  Sender: FDA-Public Use
  Company Number: RO-ACTAVIS-2013-06262

PATIENT
  Age: 30 Year
  Sex: Male

DRUGS (2)
  1. IBUPROFEN (UNKNOWN) [Suspect]
     Indication: SUICIDE ATTEMPT
     Dosage: 10 TABLETS
  2. CARBAMAZEPINE [Suspect]
     Indication: SUICIDE ATTEMPT
     Dosage: 2000 MG
     Route: 065

REACTIONS (4)
  - Psychomotor skills impaired [Recovering/Resolving]
  - Somnolence [Recovering/Resolving]
  - Intentional drug misuse [Unknown]
  - Intentional overdose [Unknown]
